FAERS Safety Report 21927826 (Version 1)
Quarter: 2023Q1

REPORT INFORMATION
  Report Type: Spontaneous
  Country: HR (occurrence: HR)
  Receive Date: 20230130
  Receipt Date: 20230130
  Transmission Date: 20230418
  Serious: Yes (Other)
  Sender: FDA-Public Use
  Company Number: None

PATIENT
  Age: 58 Year
  Sex: Female
  Weight: 80 kg

DRUGS (2)
  1. MELOXICAM [Suspect]
     Active Substance: MELOXICAM
     Indication: Arthralgia
     Route: 048
     Dates: start: 20221224, end: 20221225
  2. MELOXICAM [Suspect]
     Active Substance: MELOXICAM
     Route: 048
     Dates: start: 20230106, end: 20230106

REACTIONS (11)
  - Oral mucosal blistering [Recovered/Resolved]
  - Lip blister [Recovered/Resolved]
  - Pruritus [Recovered/Resolved]
  - Hypersensitivity [Recovered/Resolved]
  - Macule [Recovered/Resolved]
  - Retinal disorder [Recovered/Resolved]
  - Oral discomfort [Recovered/Resolved]
  - Oral mucosal blistering [Not Recovered/Not Resolved]
  - Oral discomfort [Not Recovered/Not Resolved]
  - Lip blister [Not Recovered/Not Resolved]
  - Macule [Unknown]

NARRATIVE: CASE EVENT DATE: 20221224
